FAERS Safety Report 6183438-4 (Version None)
Quarter: 2009Q2

REPORT INFORMATION
  Report Type: 
  Country: None (occurrence: None)
  Receive Date: 20090506
  Receipt Date: 20090424
  Transmission Date: 20091009
  Serious: Yes (Other)
  Sender: FDA-Public Use
  Company Number: 233684K09USA

PATIENT
  Age: 53 Year
  Sex: Female
  Weight: 82 kg

DRUGS (8)
  1. REBIF [Suspect]
     Indication: MULTIPLE SCLEROSIS
     Dosage: 44 MCG, 3 IN 1 WEEKS, SUBCUTANEOUS
     Route: 058
     Dates: start: 20080827
  2. BUPROPION HCL [Concomitant]
  3. METHYLPHENIDATE HCL [Concomitant]
  4. BACLOFEN [Concomitant]
  5. AMITRIPTYLINE HCL [Concomitant]
  6. IBUPROFEN [Concomitant]
  7. OMEPRAZOLE [Concomitant]
  8. ZOLPIDEM [Concomitant]

REACTIONS (2)
  - SKIN DISCOLOURATION [None]
  - SPLENOMEGALY [None]
